FAERS Safety Report 10901070 (Version 1)
Quarter: 2015Q1

REPORT INFORMATION
  Report Type: Report from Study
  Country: US (occurrence: US)
  Receive Date: 20150310
  Receipt Date: 20150310
  Transmission Date: 20150721
  Serious: Yes (Hospitalization)
  Sender: FDA-Public Use
  Company Number: US-BEH-2015049406

PATIENT
  Age: 76 Year
  Sex: Female
  Weight: 95 kg

DRUGS (1)
  1. HIZENTRA [Suspect]
     Active Substance: HUMAN IMMUNOGLOBULIN G

REACTIONS (2)
  - Injury [Unknown]
  - Fall [Unknown]

NARRATIVE: CASE EVENT DATE: 20150223
